FAERS Safety Report 8390261-9 (Version None)
Quarter: 2012Q2

REPORT INFORMATION
  Report Type: 
  Country: None (occurrence: None)
  Receive Date: 20120529
  Receipt Date: 20120524
  Transmission Date: 20120825
  Serious: Yes (Other)
  Sender: FDA-Public Use
  Company Number: US-PFIZER INC-2012068909

PATIENT
  Sex: Male

DRUGS (2)
  1. SUTENT [Suspect]
     Indication: RENAL CELL CARCINOMA
     Dosage: UNK
  2. SUTENT [Suspect]
     Dosage: UNK

REACTIONS (7)
  - LIP BLISTER [None]
  - DYSURIA [None]
  - RENAL DISORDER [None]
  - ORAL MUCOSAL BLISTERING [None]
  - ORCHITIS [None]
  - PENILE BLISTER [None]
  - INFECTION [None]
